FAERS Safety Report 9452311 (Version 1)
Quarter: 2013Q3

REPORT INFORMATION
  Report Type: Spontaneous
  Country: US (occurrence: None)
  Receive Date: 20130808
  Receipt Date: 20130808
  Transmission Date: 20140515
  Serious: Yes (Disabling)
  Sender: FDA-Public Use
  Company Number: None

PATIENT
  Age: 29 Year
  Sex: Female
  Weight: 62.14 kg

DRUGS (6)
  1. METFORMIN HCL ER TABS 500MG [Suspect]
     Indication: INSULIN RESISTANCE
     Dosage: 2 PILLS  TWICE DAILY (MORNING AND EVENING) BY MOUTH
     Route: 048
     Dates: start: 20130619, end: 20130725
  2. METFORMIN HCL ER TABS 500MG [Suspect]
     Indication: POLYCYSTIC OVARIES
     Dosage: 2 PILLS  TWICE DAILY (MORNING AND EVENING) BY MOUTH
     Route: 048
     Dates: start: 20130619, end: 20130725
  3. VITAMINS: FLINESTONES COMPLETE [Concomitant]
  4. VITAMIN C [Concomitant]
  5. ACIDOPHILUS [Concomitant]
  6. BEE POLLEN [Concomitant]

REACTIONS (7)
  - Product substitution issue [None]
  - Diarrhoea [None]
  - Abdominal distension [None]
  - Nausea [None]
  - Dizziness [None]
  - Fatigue [None]
  - Muscle spasms [None]
